FAERS Safety Report 23855967 (Version 1)
Quarter: 2024Q2

REPORT INFORMATION
  Report Type: Spontaneous
  Country: CN (occurrence: CN)
  Receive Date: 20240515
  Receipt Date: 20240515
  Transmission Date: 20240716
  Serious: Yes (Other)
  Sender: FDA-Public Use
  Company Number: CN-BEIGENE-BGN-2024-007038

PATIENT

DRUGS (2)
  1. TISLELIZUMAB [Suspect]
     Active Substance: TISLELIZUMAB
     Indication: Tonsil cancer
     Dosage: 200 MILLILITER
     Route: 041
     Dates: start: 20240329
  2. PACLITAXEL [Concomitant]
     Active Substance: PACLITAXEL
     Indication: Tonsil cancer
     Dosage: 360 MILLILITER
     Route: 041
     Dates: start: 20240329

REACTIONS (2)
  - Pruritus [Recovering/Resolving]
  - Rash [Recovering/Resolving]

NARRATIVE: CASE EVENT DATE: 20240331
